FAERS Safety Report 8607073-0 (Version None)
Quarter: 2012Q3

REPORT INFORMATION
  Report Type: 
  Country: None (occurrence: None)
  Receive Date: 20120821
  Receipt Date: 20120810
  Transmission Date: 20120928
  Serious: Yes (Death, Hospitalization)
  Sender: FDA-Public Use
  Company Number: CA-BRISTOL-MYERS SQUIBB COMPANY-16813586

PATIENT
  Age: 56 Year
  Sex: Male

DRUGS (8)
  1. IPILIMUMAB [Suspect]
     Indication: MALIGNANT MELANOMA
     Dosage: NO. OF COURSES:3
     Route: 042
     Dates: start: 20120531, end: 20120710
  2. WARFARIN SODIUM [Concomitant]
     Indication: ATRIAL FIBRILLATION
     Route: 048
  3. ADVIL [Concomitant]
     Dosage: EVERY 4 HOURS
  4. METOPROLOL TARTRATE [Concomitant]
     Indication: ATRIAL FIBRILLATION
     Dosage: 50MG,BID.23JUL12
  5. ASPIRIN [Concomitant]
  6. ALBUTEROL SULATE [Concomitant]
     Dosage: 100MCG/DS,Q4H,PRN.
  7. MULTI-VITAMIN [Concomitant]
     Dosage: 1 DF: 1 TABLET
  8. TYLENOL W/ CODEINE NO. 2 [Concomitant]
     Dosage: 1 DF: 1-2 TABLETS, EVERY 6 HRS.
     Dates: end: 20120723

REACTIONS (3)
  - DEHYDRATION [None]
  - NEOPLASM MALIGNANT [None]
  - VOMITING [None]
